FAERS Safety Report 24525158 (Version 2)
Quarter: 2024Q4

REPORT INFORMATION
  Report Type: Report from Study
  Country: CO (occurrence: CO)
  Receive Date: 20241019
  Receipt Date: 20241223
  Transmission Date: 20250115
  Serious: Yes (Hospitalization, Other)
  Sender: ABBVIE
  Company Number: CO-ABBVIE-5969096

PATIENT
  Age: 65 Year
  Sex: Female
  Weight: 41 kg

DRUGS (1)
  1. VENCLEXTA [Suspect]
     Active Substance: VENETOCLAX
     Indication: Acute myeloid leukaemia
     Dosage: FORM STRENGTH 100 MILLIGRAM MILLIGRAM?FREQUENCY TEXT: 21 DAY CYCLES
     Route: 048
     Dates: start: 20240507, end: 20240906

REACTIONS (5)
  - Peritonitis [Recovering/Resolving]
  - Gastric infection [Recovering/Resolving]
  - Abdominal pain upper [Recovering/Resolving]
  - Asthenia [Recovering/Resolving]
  - Weight decreased [Recovering/Resolving]

NARRATIVE: CASE EVENT DATE: 20240101
